FAERS Safety Report 22387476 (Version 2)
Quarter: 2023Q2

REPORT INFORMATION
  Report Type: Other
  Country: GB (occurrence: GB)
  Receive Date: 20230531
  Receipt Date: 20230611
  Transmission Date: 20230722
  Serious: Yes (Life-Threatening, Hospitalization, Disabling, Other)
  Sender: FDA-Public Use
  Company Number: None

PATIENT
  Age: 53 Year
  Sex: Male
  Weight: 82 kg

DRUGS (39)
  1. CETIRIZINE [Suspect]
     Active Substance: CETIRIZINE HYDROCHLORIDE
     Indication: Product used for unknown indication
     Dosage: 10 MG, QD
     Route: 048
     Dates: start: 20180207, end: 20180207
  2. CETIRIZINE [Suspect]
     Active Substance: CETIRIZINE HYDROCHLORIDE
     Indication: Cerebrovascular accident prophylaxis
  3. NAPROXEN [Suspect]
     Active Substance: NAPROXEN
     Indication: Product used for unknown indication
     Dosage: UNK
     Route: 065
  4. ISOSORBIDE MONONITRATE [Suspect]
     Active Substance: ISOSORBIDE MONONITRATE
     Indication: Product used for unknown indication
     Dosage: 50 MILLIGRAM, QD
     Route: 048
  5. APIXABAN [Suspect]
     Active Substance: APIXABAN
     Indication: Cerebrovascular accident prophylaxis
     Dosage: 10 MG, QD
     Route: 065
     Dates: start: 20180207, end: 20180207
  6. BISOPROLOL FUMARATE [Suspect]
     Active Substance: BISOPROLOL FUMARATE
     Indication: Cerebrovascular accident prophylaxis
     Dosage: 10 MG, QD
     Route: 065
  7. CANDESARTAN [Suspect]
     Active Substance: CANDESARTAN
     Indication: Product used for unknown indication
     Dosage: UNK, QD
     Route: 065
     Dates: start: 20220222
  8. ASTRAZENECA COVID-19 VACCINE [Suspect]
     Active Substance: AZD-1222
     Indication: COVID-19 immunisation
     Dosage: UNK
     Route: 030
     Dates: start: 20210605
  9. ASTRAZENECA COVID-19 VACCINE [Suspect]
     Active Substance: AZD-1222
     Dosage: UNK
     Route: 030
     Dates: start: 20210312, end: 20210312
  10. ASTRAZENECA COVID-19 VACCINE [Suspect]
     Active Substance: AZD-1222
     Dosage: UNK
     Route: 030
     Dates: start: 20210622, end: 20210622
  11. ASTRAZENECA COVID-19 VACCINE [Suspect]
     Active Substance: AZD-1222
     Dosage: UNK
     Route: 030
     Dates: start: 20221214
  12. ASTRAZENECA COVID-19 VACCINE [Suspect]
     Active Substance: AZD-1222
     Dosage: UNK
     Route: 030
     Dates: start: 20211221, end: 20211221
  13. ASTRAZENECA COVID-19 VACCINE [Suspect]
     Active Substance: AZD-1222
     Dosage: UNK
     Route: 030
  14. ASTRAZENECA COVID-19 VACCINE [Suspect]
     Active Substance: AZD-1222
     Dosage: UNK
     Route: 030
     Dates: start: 20210517
  15. ASTRAZENECA COVID-19 VACCINE [Suspect]
     Active Substance: AZD-1222
     Dosage: UNK
     Route: 030
     Dates: start: 20210625
  16. ASTRAZENECA COVID-19 VACCINE [Suspect]
     Active Substance: AZD-1222
     Dosage: UNK
     Route: 030
     Dates: start: 20210312
  17. ASTRAZENECA COVID-19 VACCINE [Suspect]
     Active Substance: AZD-1222
     Dosage: UNK
     Route: 030
  18. ASTRAZENECA COVID-19 VACCINE [Suspect]
     Active Substance: AZD-1222
     Dosage: UNK
     Route: 030
     Dates: start: 20211021
  19. DAPAGLIFLOZIN [Suspect]
     Active Substance: DAPAGLIFLOZIN
     Indication: Ill-defined disorder
     Dosage: 10 MG, QD
     Route: 048
     Dates: start: 20230217
  20. DIGOXIN [Suspect]
     Active Substance: DIGOXIN
     Indication: Cerebrovascular accident prophylaxis
     Dosage: 63 UG, QD
     Route: 065
  21. ESOMEPRAZOLE [Suspect]
     Active Substance: ESOMEPRAZOLE
     Indication: Reflux laryngitis
     Dosage: 40 MG;
     Route: 065
  22. FELODIPINE [Suspect]
     Active Substance: FELODIPINE
     Indication: Blood pressure abnormal
     Dosage: UNK; ;
     Route: 065
  23. HYDROCHLOROTHIAZIDE [Suspect]
     Active Substance: HYDROCHLOROTHIAZIDE
     Indication: Product used for unknown indication
     Dosage: 2 MG;
     Route: 048
  24. IMDUR [Suspect]
     Active Substance: ISOSORBIDE MONONITRATE
     Indication: Product used for unknown indication
     Dosage: 50 MG, QD
     Route: 048
  25. ISOSORBIDE DINITRATE [Suspect]
     Active Substance: ISOSORBIDE DINITRATE
     Indication: Product used for unknown indication
     Dosage: 50 MG, QD
     Route: 048
  26. LANSOPRAZOLE [Suspect]
     Active Substance: LANSOPRAZOLE
     Indication: Atrial fibrillation
     Dosage: 30 MG, QD
     Route: 065
  27. LEVOTHYROXINE SODIUM [Suspect]
     Active Substance: LEVOTHYROXINE SODIUM
     Indication: Product used for unknown indication
     Dosage: 12 UG, QD
     Route: 065
  28. SIMVASTATIN [Suspect]
     Active Substance: SIMVASTATIN
     Indication: Product used for unknown indication
     Dosage: 40 MG, QD
     Route: 048
  29. LINAGLIPTIN [Suspect]
     Active Substance: LINAGLIPTIN
     Indication: Product used for unknown indication
     Dosage: 5 MG, QD
     Route: 065
  30. AMITRIPTYLINE HYDROCHLORIDE [Concomitant]
     Active Substance: AMITRIPTYLINE HYDROCHLORIDE
     Indication: Product used for unknown indication
     Dosage: UNK, QD
     Route: 065
     Dates: start: 20221123
  31. BENDROFLUMETHIAZIDE [Concomitant]
     Active Substance: BENDROFLUMETHIAZIDE
     Indication: Product used for unknown indication
     Dosage: UNK UNK, QD
     Route: 065
     Dates: start: 20221123
  32. BISOPROLOL [Concomitant]
     Active Substance: BISOPROLOL
     Indication: Product used for unknown indication
     Dosage: UNK, QD
     Route: 065
     Dates: start: 20230301
  33. ESTRIOL [Concomitant]
     Active Substance: ESTRIOL
     Indication: Product used for unknown indication
     Dosage: UNK, QD
     Route: 065
     Dates: start: 20221123
  34. FOSFOMYCIN [Concomitant]
     Active Substance: FOSFOMYCIN
     Indication: Product used for unknown indication
     Dosage: UNK; ;
     Route: 065
     Dates: start: 20230227, end: 20230228
  35. LANSOPRAZOLE [Concomitant]
     Active Substance: LANSOPRAZOLE
     Indication: Ill-defined disorder
     Dosage: UNK, QD
     Route: 065
     Dates: start: 20210628
  36. LEVOTHYROXINE [Concomitant]
     Active Substance: LEVOTHYROXINE
     Indication: Ill-defined disorder
     Dosage: UNK, QD
     Route: 065
     Dates: start: 20210628
  37. LOSARTAN [Concomitant]
     Active Substance: LOSARTAN
     Indication: Ill-defined disorder
     Dosage: UNK, QD
     Route: 065
     Dates: start: 20210628
  38. OMEPRAZOLE [Concomitant]
     Active Substance: OMEPRAZOLE
     Indication: Product used for unknown indication
     Dosage: UNK, QD
     Route: 065
     Dates: start: 20221123
  39. SIMVASTATIN [Concomitant]
     Active Substance: SIMVASTATIN
     Indication: Product used for unknown indication
     Dosage: UNK, QD
     Route: 065
     Dates: start: 20221123

REACTIONS (68)
  - Blindness [Not Recovered/Not Resolved]
  - Myocardial infarction [Recovered/Resolved]
  - Blood glucose increased [Unknown]
  - Eye pruritus [Recovered/Resolved]
  - Amnesia [Not Recovered/Not Resolved]
  - Diarrhoea [Recovered/Resolved]
  - Subarachnoid haemorrhage [Recovered/Resolved]
  - Cardiospasm [Not Recovered/Not Resolved]
  - Pain of skin [Recovered/Resolved]
  - Peripheral swelling [Recovered/Resolved]
  - Diplopia [Not Recovered/Not Resolved]
  - Hallucination [Recovered/Resolved]
  - Angioedema [Recovered/Resolved]
  - Disturbance in attention [Recovered/Resolved]
  - Cognitive disorder [Recovered/Resolved]
  - Memory impairment [Recovered/Resolved]
  - Visual impairment [Not Recovered/Not Resolved]
  - Carotid artery occlusion [Recovered/Resolved]
  - Vasculitis [Not Recovered/Not Resolved]
  - Transient ischaemic attack [Recovered/Resolved]
  - Pruritus genital [Recovered/Resolved]
  - Sleep terror [Recovered/Resolved]
  - Adverse drug reaction [Not Recovered/Not Resolved]
  - Muscle twitching [Unknown]
  - Anxiety [Not Recovered/Not Resolved]
  - Palmoplantar keratoderma [Not Recovered/Not Resolved]
  - Immunisation [Recovered/Resolved]
  - Pericarditis [Not Recovered/Not Resolved]
  - Anosmia [Recovered/Resolved]
  - Alopecia [Recovered/Resolved]
  - Intentional product misuse [Unknown]
  - Intentional product use issue [Unknown]
  - Off label use [Unknown]
  - Lip swelling [Recovered/Resolved]
  - Dehydration [Unknown]
  - Dizziness [Recovered/Resolved]
  - Abdominal discomfort [Unknown]
  - Migraine [Not Recovered/Not Resolved]
  - Tension headache [Not Recovered/Not Resolved]
  - Tinnitus [Not Recovered/Not Resolved]
  - COVID-19 [Recovered/Resolved]
  - Ventricular tachycardia [Not Recovered/Not Resolved]
  - Heart rate increased [Unknown]
  - Atrial tachycardia [Not Recovered/Not Resolved]
  - Tachycardia [Unknown]
  - Palpitations [Unknown]
  - Chest pain [Unknown]
  - Hyperhidrosis [Unknown]
  - Insomnia [Unknown]
  - Dry skin [Not Recovered/Not Resolved]
  - Vomiting [Recovered/Resolved]
  - Headache [Not Recovered/Not Resolved]
  - Fatigue [Unknown]
  - Malaise [Unknown]
  - Malaise [Unknown]
  - Nausea [Recovered/Resolved]
  - Arthralgia [Recovered/Resolved]
  - Dyspnoea [Unknown]
  - Muscular weakness [Unknown]
  - Feeling abnormal [Unknown]
  - Abdominal pain [Unknown]
  - Back pain [Unknown]
  - Rash papular [Recovered/Resolved]
  - Pruritus [Recovered/Resolved]
  - Pain [Recovered/Resolved]
  - Facial pain [Recovered/Resolved]
  - Pyrexia [Recovered/Resolved]
  - Off label use [Unknown]
